FAERS Safety Report 6700403-6 (Version None)
Quarter: 2010Q2

REPORT INFORMATION
  Report Type: 
  Country: None (occurrence: None)
  Receive Date: 20100428
  Receipt Date: 20100419
  Transmission Date: 20101027
  Serious: Yes (Hospitalization)
  Sender: FDA-Public Use
  Company Number: US-ROCHE-693615

PATIENT
  Sex: Male
  Weight: 85 kg

DRUGS (15)
  1. BEVACIZUMAB [Suspect]
     Indication: PROSTATE CANCER
     Dosage: FREQUENCY REPORTED: Q 3WEEKS X 8
     Route: 042
     Dates: start: 20090915, end: 20100216
  2. DOCETAXEL [Suspect]
     Indication: PROSTATE CANCER
     Dosage: FREQUENCY REPORTED: Q 3WEEKS X 4
     Route: 042
     Dates: start: 20090915, end: 20091117
  3. BICALUTAMIDE [Suspect]
     Indication: PROSTATE CANCER
     Route: 048
     Dates: start: 20091208
  4. TRIPTORELIN [Suspect]
     Indication: PROSTATE CANCER
     Dosage: DRUG : TRELSTAR INJECTION
     Route: 030
     Dates: start: 20090918
  5. TRIPTORELIN [Suspect]
     Route: 030
     Dates: start: 20091222
  6. VERAPAMIL [Concomitant]
     Indication: HYPERTENSION
     Route: 048
     Dates: start: 19800101, end: 20091212
  7. VERAPAMIL [Concomitant]
     Dosage: START DATE WAS MENTIONED AS 31DECEMBER 2010
     Route: 048
     Dates: end: 20100403
  8. ENALAPRIL MALEATE [Concomitant]
     Indication: HYPERTENSION
     Route: 048
     Dates: start: 19800101
  9. ZOCOR [Concomitant]
     Route: 048
     Dates: start: 20010101
  10. NEXIUM [Concomitant]
     Route: 048
     Dates: start: 20080101
  11. LEVEMIR [Concomitant]
     Indication: DIABETES MELLITUS
     Dosage: DOSE REPORTED AS 15 U DAILY
     Route: 058
     Dates: start: 20090521
  12. AMARYL [Concomitant]
     Indication: DIABETES MELLITUS
     Route: 048
     Dates: start: 20000101
  13. CREON [Concomitant]
     Indication: PANCREATITIS
     Dosage: DRUG REPORTED AS CREON 10
     Route: 048
     Dates: start: 20080101
  14. COMPAZINE [Concomitant]
     Dosage: FREQUENCY: AS NECESSARY
     Route: 048
     Dates: start: 20090915
  15. LYRICA [Concomitant]
     Indication: NEURITIS
     Dates: start: 20100310, end: 20100314

REACTIONS (4)
  - CHEST DISCOMFORT [None]
  - HEADACHE [None]
  - NODAL RHYTHM [None]
  - SKIN INFECTION [None]
